FAERS Safety Report 6914474-5 (Version None)
Quarter: 2010Q3

REPORT INFORMATION
  Report Type: 
  Country: None (occurrence: None)
  Receive Date: 20100809
  Receipt Date: 20100730
  Transmission Date: 20110219
  Serious: Yes (Hospitalization, Other)
  Sender: FDA-Public Use
  Company Number: US-PFIZER INC-2010096950

PATIENT
  Age: 25 Year
  Sex: Female

DRUGS (2)
  1. XANAX [Suspect]
     Dosage: UNK
     Dates: start: 20100720, end: 20100720
  2. OXYCODONE [Suspect]
     Dosage: UNK
     Dates: end: 20100720

REACTIONS (2)
  - DRUG ABUSE [None]
  - LETHARGY [None]
